FAERS Safety Report 5516485-3 (Version None)
Quarter: 2007Q4

REPORT INFORMATION
  Report Type: 
  Country: None (occurrence: None)
  Receive Date: 20071114
  Receipt Date: 20070305
  Transmission Date: 20080405
  Serious: No
  Sender: FDA-Public Use
  Company Number: A0641653A

PATIENT
  Age: 46 Year
  Sex: Female

DRUGS (1)
  1. COMMIT [Suspect]
     Dates: start: 20070301, end: 20070301

REACTIONS (7)
  - APHONIA [None]
  - CHEST PAIN [None]
  - CHOKING SENSATION [None]
  - ERUCTATION [None]
  - NAUSEA [None]
  - PHARYNGOLARYNGEAL PAIN [None]
  - THROAT TIGHTNESS [None]
